FAERS Safety Report 9885629 (Version 1)
Quarter: 2014Q1

REPORT INFORMATION
  Report Type: Spontaneous
  Country: JP (occurrence: JP)
  Receive Date: 20140210
  Receipt Date: 20140210
  Transmission Date: 20141002
  Serious: Yes (Other)
  Sender: FDA-Public Use
  Company Number: JP-WATSON-2014-01857

PATIENT
  Age: 34 Year
  Sex: Female

DRUGS (3)
  1. PROGESTERONE (UNKNOWN) [Suspect]
     Indication: PROGESTIN REPLACEMENT THERAPY
     Dosage: 800 MG, DAILY
     Route: 067
     Dates: start: 20131021, end: 20131226
  2. ESTRANA [Concomitant]
     Indication: PRODUCT USED FOR UNKNOWN INDICATION
     Dosage: UNK
     Route: 062
     Dates: start: 20131015, end: 20131125
  3. DUVADILAN [Concomitant]
     Indication: PRODUCT USED FOR UNKNOWN INDICATION
     Dosage: UNK
     Route: 030
     Dates: start: 20131025, end: 20131025

REACTIONS (3)
  - Subchorionic haematoma [Recovered/Resolved]
  - Metrorrhagia [Recovered/Resolved]
  - Maternal exposure during pregnancy [Unknown]
